FAERS Safety Report 25619428 (Version 2)
Quarter: 2025Q4

REPORT INFORMATION
  Report Type: Report from Study
  Country: CA (occurrence: CA)
  Receive Date: 20250729
  Receipt Date: 20251020
  Transmission Date: 20260117
  Serious: Yes (Hospitalization, Other)
  Sender: PFIZER
  Company Number: CA-PFIZER INC-202500150952

PATIENT
  Age: 59 Year
  Sex: Female

DRUGS (3)
  1. METHOTREXATE SODIUM [Suspect]
     Active Substance: METHOTREXATE SODIUM
     Dosage: UNK
  2. ETANERCEPT [Suspect]
     Active Substance: ETANERCEPT
     Indication: Rheumatoid arthritis
     Dosage: 50 MG, WEEKLY
  3. ETANERCEPT [Suspect]
     Active Substance: ETANERCEPT
     Indication: Rheumatoid arthritis
     Dosage: 50 MG, WEEKLY

REACTIONS (10)
  - Cardiac failure congestive [Not Recovered/Not Resolved]
  - Drug intolerance [Not Recovered/Not Resolved]
  - Haemorrhage [Not Recovered/Not Resolved]
  - Illness [Not Recovered/Not Resolved]
  - International normalised ratio increased [Not Recovered/Not Resolved]
  - Platelet count decreased [Not Recovered/Not Resolved]
  - Upper gastrointestinal haemorrhage [Not Recovered/Not Resolved]
  - Arthralgia [Not Recovered/Not Resolved]
  - Pain [Not Recovered/Not Resolved]
  - Stress [Not Recovered/Not Resolved]
